FAERS Safety Report 9008162 (Version 2)
Quarter: 2013Q3

REPORT INFORMATION
  Report Type: Spontaneous
  Country: JP (occurrence: None)
  Receive Date: 20121227
  Receipt Date: 20130816
  Transmission Date: 20140515
  Serious: Yes (Hospitalization)
  Sender: FDA-Public Use
  Company Number: TCI2012A07368

PATIENT
  Age: 81 Year
  Sex: Female

DRUGS (1)
  1. TAKEPRON (LANSOPRAZOLE) [Suspect]
     Route: 048

REACTIONS (9)
  - Colitis microscopic [None]
  - Pyrexia [None]
  - Peritonitis [None]
  - Large intestinal ulcer [None]
  - Diarrhoea [None]
  - Gastrointestinal perforation [None]
  - Septic shock [None]
  - Disseminated intravascular coagulation [None]
  - Diverticulum intestinal [None]
